FAERS Safety Report 5513718-4 (Version None)
Quarter: 2007Q4

REPORT INFORMATION
  Report Type: 
  Country: None (occurrence: None)
  Receive Date: 20071110
  Receipt Date: 20071110
  Transmission Date: 20080405
  Serious: Yes (Life-Threatening, Disabling, Other)
  Sender: FDA-Public Use
  Company Number: None

PATIENT
  Age: 58 Year
  Sex: Male
  Weight: 104.3273 kg

DRUGS (4)
  1. RIBAVIRIN [Suspect]
     Indication: LIVER DISORDER
     Dosage: 3 + 3 200MG EACH 3 IN AM 3 IN PM ORAL
     Route: 048
     Dates: start: 20070711, end: 20070809
  2. CARVEDILOL [Concomitant]
  3. INFERGEN [Concomitant]
  4. NEUPOGEN [Concomitant]

REACTIONS (9)
  - ASTHENIA [None]
  - DISORIENTATION [None]
  - DYSARTHRIA [None]
  - DYSPNOEA [None]
  - GASTROINTESTINAL PAIN [None]
  - IMPAIRED DRIVING ABILITY [None]
  - IMPAIRED WORK ABILITY [None]
  - LETHARGY [None]
  - PRURITUS [None]
